FAERS Safety Report 8918361 (Version 1)
Quarter: 2012Q4

REPORT INFORMATION
  Report Type: 
  Country: US (occurrence: US)
  Receive Date: 20121120
  Receipt Date: 20121120
  Transmission Date: 20130627
  Serious: No
  Sender: FDA-Public Use
  Company Number: US-ASTRAZENECA-2012SE17096

PATIENT
  Age: 48 Year
  Sex: Female

DRUGS (23)
  1. NEXIUM [Suspect]
     Indication: DYSPEPSIA
     Route: 048
     Dates: start: 20110805
  2. NEXIUM [Suspect]
     Indication: GASTROOESOPHAGEAL REFLUX DISEASE
     Route: 048
     Dates: start: 20110805
  3. ATENOLOL [Suspect]
     Indication: MIGRAINE
     Route: 048
     Dates: start: 20110805
  4. ATENOLOL [Suspect]
     Indication: ANXIETY
     Route: 048
     Dates: start: 20110805
  5. CELEBREX [Concomitant]
     Indication: PAIN
  6. CELEBREX [Concomitant]
     Indication: ARTHRITIS
  7. CLARINEX [Concomitant]
     Indication: MULTIPLE ALLERGIES
  8. FERROUS SULPHATE [Concomitant]
     Indication: IRON DEFICIENCY
  9. FLUOXETINE [Concomitant]
     Indication: ANXIETY
  10. FLUOXETINE [Concomitant]
     Indication: DEPRESSION
  11. LIPITOR [Concomitant]
     Indication: BLOOD CHOLESTEROL ABNORMAL
  12. LOVAZA [Concomitant]
     Indication: DYSLIPIDAEMIA
  13. METHOCARBAMOL [Concomitant]
     Indication: MUSCLE SPASMS
  14. METHOCARBAMOL [Concomitant]
     Indication: MUSCLE SPASMS
  15. NASONEX [Concomitant]
     Indication: MULTIPLE ALLERGIES
  16. NEURONTIN [Concomitant]
     Indication: PAIN
  17. PROAIR HFA [Concomitant]
     Indication: WHEEZING
  18. PROAIR HFA [Concomitant]
     Indication: DYSPNOEA
  19. REQUIP [Concomitant]
     Indication: RESTLESS LEGS SYNDROME
  20. SPIRIVA [Concomitant]
     Indication: CHRONIC OBSTRUCTIVE PULMONARY DISEASE
  21. SYNTHROID [Concomitant]
     Indication: HYPOTHYROIDISM
  22. VISTARIL [Concomitant]
     Indication: ANXIETY
  23. VISTARIL [Concomitant]
     Indication: MULTIPLE ALLERGIES

REACTIONS (5)
  - Dyslipidaemia [Unknown]
  - Restless legs syndrome [Unknown]
  - Wheezing [Unknown]
  - Dyspnoea [Unknown]
  - Off label use [Unknown]
